FAERS Safety Report 12759057 (Version 2)
Quarter: 2016Q4

REPORT INFORMATION
  Report Type: Spontaneous
  Country: US (occurrence: US)
  Receive Date: 20160919
  Receipt Date: 20161108
  Transmission Date: 20170207
  Serious: Yes (Other)
  Sender: FDA-Public Use
  Company Number: US-PFIZER INC-2016434242

PATIENT
  Age: 63 Year
  Sex: Female
  Weight: 49.9 kg

DRUGS (7)
  1. CLONIDINE. [Concomitant]
     Active Substance: CLONIDINE
     Indication: BLOOD PRESSURE ABNORMAL
     Dosage: 0.1 MG, 3X/DAY (0.1MG TABLET THREE TIMES A DAY)
     Route: 048
  2. ADVIL PM [Suspect]
     Active Substance: DIPHENHYDRAMINE CITRATE\IBUPROFEN
     Indication: SLEEP DISORDER
     Dosage: 400 MG, 1X/DAY (TWO 200MG CAPLETS AT NIGHT)
     Route: 048
  3. LEVOTHYROXIN [Concomitant]
     Active Substance: LEVOTHYROXINE
     Indication: HYPOTHYROIDISM
     Dosage: 88 UG, DAILY (88MCG TABLET BY MOUTH A DAY IN THE MORNING BEFORE BREAKFAST)
     Route: 048
  4. VALIUM [Concomitant]
     Active Substance: DIAZEPAM
     Indication: STRESS
  5. HYOSYAMINE ODT [Concomitant]
     Indication: IRRITABLE BOWEL SYNDROME
     Dosage: 0.125 MG, AS NEEDED (0.125MG TABLET UNDER TONGUE EVERY 8 HOURS AS NEEDED)
     Route: 048
  6. ADVIL PM [Suspect]
     Active Substance: DIPHENHYDRAMINE CITRATE\IBUPROFEN
     Indication: PAIN
  7. VALIUM [Concomitant]
     Active Substance: DIAZEPAM
     Indication: ANXIETY
     Dosage: 5 MG, 2X/DAY (5MG TABLET BY MOUTH TWICE A DAY)
     Route: 048

REACTIONS (4)
  - Laceration [Unknown]
  - Pain [Unknown]
  - Haemorrhage [Unknown]
  - Product container seal issue [Unknown]

NARRATIVE: CASE EVENT DATE: 20160913
